FAERS Safety Report 23508571 (Version 5)
Quarter: 2024Q3

REPORT INFORMATION
  Report Type: Report from Study
  Country: US (occurrence: US)
  Receive Date: 20240209
  Receipt Date: 20240919
  Transmission Date: 20241017
  Serious: Yes (Other)
  Sender: ABBVIE
  Company Number: US-ABBVIE-5485755

PATIENT
  Age: 72 Year
  Sex: Male

DRUGS (3)
  1. RINVOQ [Suspect]
     Active Substance: UPADACITINIB
     Indication: Dermatitis atopic
     Route: 048
  2. RINVOQ [Suspect]
     Active Substance: UPADACITINIB
     Indication: Dermatitis atopic
     Route: 048
     Dates: start: 20230130
  3. LINZESS [Concomitant]
     Active Substance: LINACLOTIDE
     Indication: Product used for unknown indication

REACTIONS (8)
  - Back pain [Unknown]
  - Therapeutic product effect decreased [Not Recovered/Not Resolved]
  - Dermatitis [Recovering/Resolving]
  - Skin infection [Unknown]
  - Therapeutic product effect delayed [Unknown]
  - Memory impairment [Unknown]
  - Furuncle [Unknown]
  - Skin lesion [Unknown]

NARRATIVE: CASE EVENT DATE: 20230904
